FAERS Safety Report 17965386 (Version 6)
Quarter: 2020Q4

REPORT INFORMATION
  Report Type: Spontaneous
  Country: US (occurrence: US)
  Receive Date: 20200630
  Receipt Date: 20201006
  Transmission Date: 20210113
  Serious: No
  Sender: FDA-Public Use
  Company Number: US-SA-2020SA167204

PATIENT

DRUGS (1)
  1. APIDRA SOLOSTAR [Suspect]
     Active Substance: INSULIN GLULISINE
     Dosage: 2-15 UNITS, TID (SMALL DOSE OF THE APIDRA SOLOSTAR AT BREAKFAST, A MEDIUM SIZED DOSE WITH LUNCH AND
     Route: 065
     Dates: start: 202005

REACTIONS (3)
  - Blood glucose increased [Unknown]
  - Therapeutic product effect decreased [Unknown]
  - Product contamination physical [Unknown]
